FAERS Safety Report 4407701-X (Version None)
Quarter: 2004Q3

REPORT INFORMATION
  Report Type: 
  Country: None (occurrence: None)
  Receive Date: 20040722
  Receipt Date: 20040714
  Transmission Date: 20050211
  Serious: Yes (Other)
  Sender: FDA-Public Use
  Company Number: 002004

PATIENT
  Sex: Female

DRUGS (9)
  1. MEDROXYPROGESTERONE ACETATE [Suspect]
  2. ESTRACE [Suspect]
  3. ESTRADER (ESTRADIOL) [Suspect]
  4. CYCRIN [Suspect]
  5. VIVELLE-DOT [Suspect]
  6. PROVERA [Suspect]
  7. PREMARIN [Suspect]
  8. MEDROXYPROGESTERONE ACETATE [Suspect]
  9. ESTRADIOL [Suspect]

REACTIONS (1)
  - BREAST CANCER FEMALE [None]
